FAERS Safety Report 7043560-7 (Version None)
Quarter: 2010Q4

REPORT INFORMATION
  Report Type: 
  Country: None (occurrence: None)
  Receive Date: 20101013
  Receipt Date: 20101012
  Transmission Date: 20110411
  Serious: Yes (Death, Hospitalization)
  Sender: FDA-Public Use
  Company Number: A0868673A

PATIENT
  Age: 86 Year
  Sex: Female

DRUGS (1)
  1. PROMACTA [Suspect]
     Indication: BLOOD DISORDER
     Dosage: 50MG PER DAY
     Route: 048
     Dates: start: 20090414, end: 20100201

REACTIONS (4)
  - DEATH [None]
  - DRUG INEFFECTIVE [None]
  - HAEMORRHAGE [None]
  - ULCER [None]
